FAERS Safety Report 5641436-0 (Version None)
Quarter: 2008Q1

REPORT INFORMATION
  Report Type: 
  Country: None (occurrence: None)
  Receive Date: 20080227
  Receipt Date: 20070820
  Transmission Date: 20080703
  Serious: No
  Sender: FDA-Public Use
  Company Number: A0671401A

PATIENT
  Sex: Male

DRUGS (1)
  1. NICORETTE [Suspect]
     Indication: DRUG WITHDRAWAL MAINTENANCE THERAPY

REACTIONS (1)
  - INTENTIONAL DRUG MISUSE [None]
